FAERS Safety Report 7624834 (Version 7)
Quarter: 2013Q4

REPORT INFORMATION
  Report Type: Spontaneous
  Country: US (occurrence: US)
  Receive Date: 20101012
  Receipt Date: 20131220
  Transmission Date: 20140711
  Serious: Yes (Other)
  Sender: FDA-Public Use
  Company Number: US-BAYER-201036214NA

PATIENT
  Age: 29 Year
  Sex: Female
  Weight: 90.7 kg

DRUGS (7)
  1. YAZ [Suspect]
     Indication: CONTRACEPTION
     Dosage: UNK
     Dates: start: 2006
  2. IMITREX [Concomitant]
     Dosage: 100 MG, UNK
     Route: 048
  3. PREVACID [Concomitant]
     Dosage: 15 MG, UNK
     Route: 048
  4. TREXIMET [Concomitant]
     Dosage: 25 MG/HOUR OF SLEEP
  5. VERAPAMIL [Concomitant]
     Dosage: 120 MG, QD
  6. PRO-AIR [Concomitant]
     Indication: DYSPNOEA
     Dosage: UNK
     Dates: start: 2008
  7. PAXIL [Concomitant]
     Dosage: 40 MG, UNK
     Route: 048

REACTIONS (4)
  - Gallbladder disorder [None]
  - Biliary dyskinesia [None]
  - Mental disorder [None]
  - Depression [None]
